FAERS Safety Report 5923570-0 (Version None)
Quarter: 2008Q4

REPORT INFORMATION
  Report Type: 
  Country: None (occurrence: None)
  Receive Date: 20081020
  Receipt Date: 20081009
  Transmission Date: 20090506
  Serious: Yes (Hospitalization, Other)
  Sender: FDA-Public Use
  Company Number: PHHY2008IE18279

PATIENT
  Sex: Female

DRUGS (5)
  1. CLOZARIL [Suspect]
     Indication: SCHIZOPHRENIA
     Dosage: 325 MG
     Dates: start: 19981130, end: 20080927
  2. RISPERIDONE [Concomitant]
     Indication: SCHIZOPHRENIA
     Dosage: 5 MG
     Route: 048
     Dates: start: 20020101
  3. LAMOTRIGINE [Concomitant]
     Indication: AFFECTIVE DISORDER
     Dosage: 50 MG
     Route: 048
     Dates: start: 20060101
  4. ZOPICLONE [Concomitant]
     Indication: INSOMNIA
     Dosage: 10 MG
     Route: 048
     Dates: start: 20010101
  5. ESCITALOPRAM [Concomitant]
     Indication: DEPRESSED MOOD
     Dosage: 10 MG
     Route: 048
     Dates: start: 20080429

REACTIONS (5)
  - BREAST DISORDER [None]
  - CHEMOTHERAPY [None]
  - DROOLING [None]
  - INFECTION [None]
  - MASTECTOMY [None]
